FAERS Safety Report 8086533-8 (Version None)
Quarter: 2012Q1

REPORT INFORMATION
  Report Type: 
  Country: None (occurrence: None)
  Receive Date: 20120128
  Receipt Date: 20110411
  Transmission Date: 20120608
  Serious: No
  Sender: FDA-Public Use
  Company Number: US-ABBOTT-11P-163-0716982-00

PATIENT
  Age: 73 Year
  Sex: Female

DRUGS (4)
  1. NIZATIDINE [Concomitant]
     Indication: GASTRIC DISORDER
  2. LEVOTHYROXINE SODIUM [Concomitant]
     Indication: HYPOTHYROIDISM
  3. COMBIVENT [Concomitant]
     Indication: EMPHYSEMA
     Route: 055
  4. HUMIRA [Suspect]
     Indication: CROHN'S DISEASE
     Dates: start: 20110128

REACTIONS (1)
  - DRUG INEFFECTIVE [None]
